FAERS Safety Report 7278522-8 (Version None)
Quarter: 2011Q1

REPORT INFORMATION
  Report Type: 
  Country: None (occurrence: None)
  Receive Date: 20110207
  Receipt Date: 20110112
  Transmission Date: 20110831
  Serious: Yes (Other)
  Sender: FDA-Public Use
  Company Number: US-BAYER-2011-003821

PATIENT
  Sex: Female
  Weight: 50 kg

DRUGS (6)
  1. PLAVIX [Concomitant]
  2. GLIPIZIDE [Concomitant]
  3. TYLENOL W/ CODEINE [Concomitant]
  4. LORAZEPAM [Concomitant]
  5. METOPROLOL TARTRATE [Concomitant]
  6. ALEVE (CAPLET) [Suspect]
     Dosage: UNK
     Route: 048
     Dates: start: 20110110

REACTIONS (7)
  - DIARRHOEA [None]
  - HAEMATOCHEZIA [None]
  - DIZZINESS [None]
  - SKIN IRRITATION [None]
  - ABDOMINAL PAIN [None]
  - NAUSEA [None]
  - TINNITUS [None]
